FAERS Safety Report 6485119-6 (Version None)
Quarter: 2009Q4

REPORT INFORMATION
  Report Type: 
  Country: None (occurrence: None)
  Receive Date: 20091203
  Receipt Date: 20090820
  Transmission Date: 20100525
  Serious: Yes (Other)
  Sender: FDA-Public Use
  Company Number: 1000010383

PATIENT
  Age: 52 Year
  Sex: Male

DRUGS (3)
  1. CITALOPRAM HYDROBROMIDE [Suspect]
     Indication: DEPRESSION
     Dosage: 5 GTT (5 GTT, 1 IN 1 D), ORAL
     Route: 048
     Dates: start: 20090801, end: 20090820
  2. BROMAZEPAM [Concomitant]
  3. AERIUS [Concomitant]

REACTIONS (2)
  - DERMATITIS EXFOLIATIVE [None]
  - PHOTOSENSITIVITY REACTION [None]
